FAERS Safety Report 6763722-3 (Version None)
Quarter: 2010Q2

REPORT INFORMATION
  Report Type: 
  Country: None (occurrence: None)
  Receive Date: 20100608
  Receipt Date: 20100526
  Transmission Date: 20101027
  Serious: Yes (Other)
  Sender: FDA-Public Use
  Company Number: 7006474

PATIENT
  Age: 54 Year
  Sex: Male

DRUGS (2)
  1. REBIF [Suspect]
     Indication: MULTIPLE SCLEROSIS
     Dosage: 44 MCG, 3 IN 1 WK, SUBCUTANEOUS
     Route: 058
     Dates: start: 20100111
  2. IBUPROFEN [Concomitant]

REACTIONS (11)
  - APATHY [None]
  - BALANCE DISORDER [None]
  - DEPRESSION [None]
  - DIABETES MELLITUS [None]
  - FATIGUE [None]
  - GAIT DISTURBANCE [None]
  - INAPPROPRIATE SCHEDULE OF DRUG ADMINISTRATION [None]
  - INJECTION SITE HAEMATOMA [None]
  - INJECTION SITE PAIN [None]
  - MUSCULAR WEAKNESS [None]
  - TREATMENT NONCOMPLIANCE [None]
